FAERS Safety Report 13671216 (Version 1)
Quarter: 2017Q2

REPORT INFORMATION
  Report Type: Spontaneous
  Country: US (occurrence: US)
  Receive Date: 20170620
  Receipt Date: 20170620
  Transmission Date: 20170830
  Serious: No
  Sender: FDA-Public Use
  Company Number: US-ROCHE-1330331

PATIENT
  Sex: Female

DRUGS (4)
  1. XELODA [Suspect]
     Active Substance: CAPECITABINE
     Indication: BREAST CANCER METASTATIC
     Dosage: 2 WEEKS ON ONE WEEK OFF
     Route: 065
     Dates: start: 2010
  2. AREDIA [Concomitant]
     Active Substance: PAMIDRONATE DISODIUM
     Route: 065
  3. AMLODIPINE [Concomitant]
     Active Substance: AMLODIPINE BESYLATE
     Dosage: 5/20MG
     Route: 065
  4. XELODA [Suspect]
     Active Substance: CAPECITABINE
     Dosage: ONE WEEK ON, ONE WEEK OFF
     Route: 065

REACTIONS (7)
  - Hyperaesthesia [Not Recovered/Not Resolved]
  - Skin atrophy [Not Recovered/Not Resolved]
  - Skin ulcer [Not Recovered/Not Resolved]
  - Scab [Not Recovered/Not Resolved]
  - Weight decreased [Not Recovered/Not Resolved]
  - Dry skin [Not Recovered/Not Resolved]
  - Erythema [Not Recovered/Not Resolved]
